FAERS Safety Report 7407272-X (Version None)
Quarter: 2011Q2

REPORT INFORMATION
  Report Type: 
  Country: None (occurrence: None)
  Receive Date: 20110411
  Receipt Date: 20110401
  Transmission Date: 20111010
  Serious: Yes (Hospitalization, Other)
  Sender: FDA-Public Use
  Company Number: PHHY2011US02386

PATIENT
  Sex: Female

DRUGS (4)
  1. FENTANYL [Concomitant]
     Indication: PAIN
     Dosage: UNK
  2. NYSTATIN [Concomitant]
     Indication: PAIN
     Dosage: UNK
  3. GILENYA [Suspect]
     Indication: MULTIPLE SCLEROSIS
     Dosage: 0.5 MG, DAILY
     Route: 048
     Dates: start: 20101201, end: 20110101
  4. KLONOPIN [Concomitant]
     Indication: MUSCLE SPASMS
     Dosage: UNK, BID

REACTIONS (3)
  - INFECTION [None]
  - PAIN IN EXTREMITY [None]
  - FOLLICULITIS [None]
